FAERS Safety Report 5837789-0 (Version None)
Quarter: 2008Q3

REPORT INFORMATION
  Report Type: 
  Country: None (occurrence: None)
  Receive Date: 20080801
  Receipt Date: 20080724
  Transmission Date: 20090109
  Serious: Yes (Hospitalization)
  Sender: FDA-Public Use
  Company Number: 200813547

PATIENT
  Age: 64 Year
  Sex: Male
  Weight: 81.6475 kg

DRUGS (20)
  1. ZEMAIRA [Suspect]
     Indication: ALPHA-1 ANTI-TRYPSIN DECREASED
     Dosage: 60 UG/KG Q1W IV : 60 MG/KG Q1W IV : 60 MG/KG Q1W IV
     Route: 042
     Dates: start: 20080430, end: 20080430
  2. ZEMAIRA [Suspect]
     Indication: ALPHA-1 ANTI-TRYPSIN DECREASED
     Dosage: 60 UG/KG Q1W IV : 60 MG/KG Q1W IV : 60 MG/KG Q1W IV
     Route: 042
     Dates: start: 20080313
  3. ZEMAIRA [Suspect]
     Indication: ALPHA-1 ANTI-TRYPSIN DECREASED
     Dosage: 60 UG/KG Q1W IV : 60 MG/KG Q1W IV : 60 MG/KG Q1W IV
     Route: 042
     Dates: start: 20080424
  4. ANTIBIOTICS [Concomitant]
  5. SINGULAIR [Concomitant]
  6. CELEBREX [Concomitant]
  7. ADVAIR DISKUS 100/50 [Concomitant]
  8. FLOMAX [Concomitant]
  9. SPIRIVA [Concomitant]
  10. NIACIN [Concomitant]
  11. PROVIGIL [Concomitant]
  12. METAMUCIL [Concomitant]
  13. ASPIRIN [Concomitant]
  14. CVS GLUCOSAMINE AND CHONDROITIN [Concomitant]
  15. XOPENEX [Concomitant]
  16. THEOPHYLLINE [Concomitant]
  17. MULTI-VITAMIN [Concomitant]
  18. OMEPRAZOLE [Concomitant]
  19. AF-LORATADINE [Concomitant]
  20. LISINOPRIL [Concomitant]

REACTIONS (4)
  - BRONCHITIS [None]
  - CHRONIC OBSTRUCTIVE PULMONARY DISEASE [None]
  - CONDITION AGGRAVATED [None]
  - PNEUMONIA [None]
